FAERS Safety Report 14454209 (Version 1)
Quarter: 2018Q1

REPORT INFORMATION
  Report Type: Spontaneous
  Country: US (occurrence: US)
  Receive Date: 20180128
  Receipt Date: 20180128
  Transmission Date: 20180509
  Serious: Yes (Disabling, Other)
  Sender: FDA-Public Use
  Company Number: None

PATIENT
  Age: 38 Year
  Sex: Male
  Weight: 78.75 kg

DRUGS (6)
  1. MAGNESIUM [Concomitant]
     Active Substance: MAGNESIUM
  2. VITAMIN C [Concomitant]
     Active Substance: ASCORBIC ACID
  3. MULTI VITAMINE [Concomitant]
  4. DIAZAPAM 2MG [Suspect]
     Active Substance: DIAZEPAM
     Indication: SPINAL OPERATION
     Dosage: ?          QUANTITY:30 TABLET(S);?
     Route: 048
     Dates: start: 20180127, end: 20180127
  5. CLONAZAPAM [Concomitant]
     Active Substance: CLONAZEPAM
  6. SAW PALMETTO [Concomitant]
     Active Substance: HERBALS\SAW PALMETTO

REACTIONS (3)
  - Panic attack [None]
  - Product quality issue [None]
  - Hallucination [None]

NARRATIVE: CASE EVENT DATE: 20180127
